FAERS Safety Report 19438339 (Version 1)
Quarter: 2021Q2

REPORT INFORMATION
  Report Type: Report from Study
  Country: BR (occurrence: BR)
  Receive Date: 20210618
  Receipt Date: 20210618
  Transmission Date: 20210717
  Serious: Yes (Death, Other)
  Sender: FDA-Public Use
  Company Number: BR-JNJFOC-20210635189

PATIENT

DRUGS (1)
  1. REMICADE [Suspect]
     Active Substance: INFLIXIMAB
     Indication: INFLAMMATORY BOWEL DISEASE
     Route: 042

REACTIONS (6)
  - Acute lymphocytic leukaemia [Fatal]
  - Therapeutic response decreased [Unknown]
  - Cholangitis sclerosing [Fatal]
  - Poor venous access [Unknown]
  - Adverse reaction [Unknown]
  - Anaphylactic reaction [Unknown]
